FAERS Safety Report 6091774-5 (Version None)
Quarter: 2009Q1

REPORT INFORMATION
  Report Type: 
  Country: None (occurrence: None)
  Receive Date: 20090225
  Receipt Date: 20080605
  Transmission Date: 20090719
  Serious: No
  Sender: FDA-Public Use
  Company Number: A0731469A

PATIENT
  Age: 66 Year
  Sex: Female

DRUGS (3)
  1. VALTREX [Suspect]
     Indication: GENITAL HERPES
     Dosage: 500MG TWICE PER DAY
     Route: 048
     Dates: start: 20080401
  2. ZANAFLEX [Suspect]
     Indication: MUSCLE INJURY
     Dosage: 2MG VARIABLE DOSE
     Dates: start: 20080507
  3. NO CONCURRENT MEDICATION [Concomitant]

REACTIONS (7)
  - DRUG INEFFECTIVE [None]
  - DRUG INTERACTION [None]
  - FATIGUE [None]
  - INSOMNIA [None]
  - LIMB INJURY [None]
  - PAIN IN EXTREMITY [None]
  - SOMNOLENCE [None]
